FAERS Safety Report 6088528-2 (Version None)
Quarter: 2009Q1

REPORT INFORMATION
  Report Type: 
  Country: None (occurrence: None)
  Receive Date: 20090220
  Receipt Date: 20090220
  Transmission Date: 20090719
  Serious: No
  Sender: FDA-Public Use
  Company Number: None

PATIENT
  Age: 74 Year
  Sex: Female
  Weight: 55.3388 kg

DRUGS (2)
  1. GENTAMICIN [Suspect]
     Indication: PNEUMONIA
     Dosage: 120 MG BID IV
     Route: 042
     Dates: start: 20061201, end: 20070104
  2. . [Concomitant]

REACTIONS (4)
  - BALANCE DISORDER [None]
  - DRUG TOXICITY [None]
  - OVERDOSE [None]
  - VESTIBULAR DISORDER [None]
